FAERS Safety Report 6389675-8 (Version None)
Quarter: 2009Q4

REPORT INFORMATION
  Report Type: 
  Country: None (occurrence: None)
  Receive Date: 20091006
  Receipt Date: 20090930
  Transmission Date: 20100525
  Serious: Yes (Death)
  Sender: FDA-Public Use
  Company Number: JP-BRISTOL-MYERS SQUIBB COMPANY-14694475

PATIENT
  Age: 61 Year
  Sex: Male
  Weight: 44 kg

DRUGS (11)
  1. ERBITUX [Suspect]
     Indication: COLORECTAL CANCER
     Dosage: 1ST INF 04JUN09;4TH AND MOST RECENT INF 10JUN09-01JUL09(250MG/M2)(21DAYS)
     Route: 042
     Dates: start: 20090604, end: 20090604
  2. TOPOTECAN [Suspect]
     Indication: LARGE INTESTINE CARCINOMA
     Dosage: 1ST INF 04JUN09;4TH AND MOST RECENT INF 01JUL09(250MG)
     Route: 042
     Dates: start: 20090604, end: 20090701
  3. POLARAMINE [Concomitant]
     Indication: PREMEDICATION
     Dosage: DOSE 0.7143MG
     Route: 042
     Dates: start: 20090604, end: 20090701
  4. DECADRON [Concomitant]
     Indication: PREMEDICATION
     Dosage: 1.1429MG
     Route: 042
     Dates: start: 20090604, end: 20090701
  5. KYTRIL [Concomitant]
     Indication: ANTIEMETIC SUPPORTIVE CARE
     Dates: start: 20090604, end: 20090701
  6. OXYCONTIN [Concomitant]
     Indication: CANCER PAIN
     Dosage: TABS
     Route: 048
     Dates: start: 20081023
  7. OPSO [Concomitant]
     Indication: CANCER PAIN
     Dosage: TABS
     Route: 048
     Dates: start: 20090130
  8. MOBIC [Concomitant]
     Indication: CANCER PAIN
     Dosage: TABS
     Route: 048
     Dates: start: 20081219
  9. TAKEPRON [Concomitant]
     Indication: PROPHYLAXIS AGAINST GASTROINTESTINAL ULCER
     Dosage: TABS
     Route: 048
     Dates: start: 20081011
  10. LAC-B [Concomitant]
     Indication: GASTROINTESTINAL DISORDER
     Dosage: TABS
     Route: 048
     Dates: start: 20080905
  11. GASMOTIN [Concomitant]
     Indication: GASTRITIS
     Dosage: TABS
     Route: 048
     Dates: start: 20080916

REACTIONS (1)
  - RENAL FAILURE ACUTE [None]
